FAERS Safety Report 17839064 (Version 4)
Quarter: 2024Q4

REPORT INFORMATION
  Report Type: Spontaneous
  Country: IT (occurrence: IT)
  Receive Date: 20200529
  Receipt Date: 20241122
  Transmission Date: 20250114
  Serious: Yes (Other)
  Sender: AUROBINDO
  Company Number: IT-ROCHE-2589317

PATIENT
  Age: 49 Year
  Sex: Male

DRUGS (13)
  1. GEMCITABINE [Suspect]
     Active Substance: GEMCITABINE
     Indication: Acinar cell carcinoma of pancreas
     Dosage: UNK
     Route: 065
  2. GEMCITABINE [Suspect]
     Active Substance: GEMCITABINE
     Indication: Pancreatic carcinoma
     Dosage: UNK, (FOR EIGHT CYCLE)
     Route: 065
  3. GEMCITABINE [Suspect]
     Active Substance: GEMCITABINE
     Dosage: UNK, ANOTHER 8 CYCLES
     Route: 065
     Dates: start: 201107
  4. GEMCITABINE [Suspect]
     Active Substance: GEMCITABINE
     Dosage: UNK
     Route: 065
     Dates: end: 201211
  5. IRINOTECAN [Suspect]
     Active Substance: IRINOTECAN
     Indication: Acinar cell carcinoma of pancreas
     Dosage: 200 MILLIGRAM/SQ. METER, ONCE A DAY
     Route: 065
  6. IRINOTECAN [Suspect]
     Active Substance: IRINOTECAN
     Indication: Pancreatic carcinoma
  7. OXALIPLATIN [Suspect]
     Active Substance: OXALIPLATIN
     Indication: Acinar cell carcinoma of pancreas
     Dosage: UNK
     Route: 065
     Dates: end: 200910
  8. OXALIPLATIN [Suspect]
     Active Substance: OXALIPLATIN
     Indication: Pancreatic carcinoma
  9. CAPECITABINE [Suspect]
     Active Substance: CAPECITABINE
     Indication: Acinar cell carcinoma of pancreas
     Dosage: UNK
     Route: 065
  10. CAPECITABINE [Suspect]
     Active Substance: CAPECITABINE
     Indication: Pancreatic carcinoma
     Dosage: UNK (ANOTHER 8 CYCLES)
     Route: 065
     Dates: end: 201107
  11. CAPECITABINE [Suspect]
     Active Substance: CAPECITABINE
     Dosage: UNK (FOR EIGHT CYCLES)
     Route: 065
  12. CAPECITABINE [Suspect]
     Active Substance: CAPECITABINE
     Dosage: 2000 MILLIGRAM/SQ. METER (ON DAYS 1 TO 15 EVERY 21 DAYS)
     Route: 065
     Dates: start: 201211
  13. CAPECITABINE [Suspect]
     Active Substance: CAPECITABINE
     Dosage: UNK, CYCLICAL
     Route: 065
     Dates: end: 201507

REACTIONS (7)
  - Myelosuppression [Unknown]
  - Thrombocytopenia [Unknown]
  - Anaemia [Unknown]
  - Therapy partial responder [Unknown]
  - Neuropathy peripheral [Unknown]
  - Therapeutic product effect incomplete [Unknown]
  - Disease progression [Unknown]
